FAERS Safety Report 9765235 (Version 1)
Quarter: 2013Q4

REPORT INFORMATION
  Report Type: Spontaneous
  Country: US (occurrence: None)
  Receive Date: 20131216
  Receipt Date: 20131216
  Transmission Date: 20140711
  Serious: Yes (Life-Threatening, Hospitalization)
  Sender: FDA-Public Use
  Company Number: None

PATIENT
  Age: 33 Year
  Sex: Female
  Weight: 90.72 kg

DRUGS (1)
  1. MIRENA [Suspect]
     Indication: CONTRACEPTION
     Dosage: ONE TIME INSERTION, VAGINAL
     Dates: start: 20121105, end: 20130214

REACTIONS (4)
  - Vaginal haemorrhage [None]
  - Anaemia [None]
  - Menstruation irregular [None]
  - Menorrhagia [None]
